FAERS Safety Report 5017196-3 (Version None)
Quarter: 2006Q2

REPORT INFORMATION
  Report Type: 
  Country: None (occurrence: None)
  Receive Date: 20060602
  Receipt Date: 20051116
  Transmission Date: 20061013
  Serious: Yes (Congenital Anomaly)
  Sender: FDA-Public Use
  Company Number: GB-ABBOTT-05P-167-0317415-00

PATIENT
  Sex: Male

DRUGS (1)
  1. EPILIM TABLETS [Suspect]
     Indication: DRUG EXPOSURE DURING PREGNANCY

REACTIONS (19)
  - ASTHMA [None]
  - ATTENTION DEFICIT/HYPERACTIVITY DISORDER [None]
  - CARDIAC MURMUR [None]
  - CONGENITAL EYELID MALFORMATION [None]
  - CONGENITAL NAIL DISORDER [None]
  - CONGENITAL NOSE MALFORMATION [None]
  - CORRECTIVE LENS USER [None]
  - DRUG EXPOSURE DURING PREGNANCY [None]
  - FACIAL DYSMORPHISM [None]
  - FEELING ABNORMAL [None]
  - FOETAL VALPROATE SYNDROME [None]
  - GRUNTING [None]
  - HYPERTELORISM OF ORBIT [None]
  - HYPOACUSIS [None]
  - JAUNDICE [None]
  - MOOD SWINGS [None]
  - OTITIS MEDIA [None]
  - PERIPHERAL COLDNESS [None]
  - UMBILICAL HERNIA [None]
